FAERS Safety Report 6156893-3 (Version None)
Quarter: 2009Q2

REPORT INFORMATION
  Report Type: 
  Country: None (occurrence: None)
  Receive Date: 20090413
  Receipt Date: 20090413
  Transmission Date: 20091009
  Serious: Yes (Life-Threatening)
  Sender: FDA-Public Use
  Company Number: None

PATIENT
  Age: 60 Year
  Sex: Male
  Weight: 70.3075 kg

DRUGS (2)
  1. BACTRIM [Suspect]
     Indication: CULTURE POSITIVE
     Dosage: BID PO
     Route: 048
     Dates: start: 20090211, end: 20090221
  2. BACTRIM [Suspect]
     Indication: STAPHYLOCOCCAL INFECTION
     Dosage: BID PO
     Route: 048
     Dates: start: 20090211, end: 20090221

REACTIONS (1)
  - THROMBOCYTOPENIA [None]
